FAERS Safety Report 7372504-3 (Version None)
Quarter: 2011Q1

REPORT INFORMATION
  Report Type: 
  Country: None (occurrence: None)
  Receive Date: 20110324
  Receipt Date: 20110316
  Transmission Date: 20110831
  Serious: Yes (Other)
  Sender: FDA-Public Use
  Company Number: US-JNJFOC-20080302078

PATIENT

DRUGS (3)
  1. PLACEBO [Suspect]
     Route: 042
  2. ASPIRIN [Suspect]
     Indication: PRODUCT USED FOR UNKNOWN INDICATION
  3. PLACEBO [Suspect]
     Indication: CARDIAC FAILURE ACUTE
     Route: 042

REACTIONS (1)
  - GASTRITIS [None]
